FAERS Safety Report 6542177-8 (Version None)
Quarter: 2010Q1

REPORT INFORMATION
  Report Type: 
  Country: None (occurrence: None)
  Receive Date: 20100119
  Receipt Date: 20091201
  Transmission Date: 20100710
  Serious: Yes (Hospitalization)
  Sender: FDA-Public Use
  Company Number: A0775448A

PATIENT
  Age: 40 Year
  Sex: Male
  Weight: 105.9 kg

DRUGS (12)
  1. AVANDIA [Suspect]
     Dosage: 8MG PER DAY
     Route: 048
     Dates: start: 20030626
  2. AVANDAMET [Suspect]
     Indication: DIABETES MELLITUS
     Route: 048
     Dates: start: 20051205, end: 20060106
  3. DIOVAN [Concomitant]
  4. PROTONIX [Concomitant]
  5. METFORMIN HCL [Concomitant]
  6. LANTUS [Concomitant]
  7. COREG [Concomitant]
  8. ALLEGRA [Concomitant]
  9. CELEBREX [Concomitant]
  10. GLIPIZIDE [Concomitant]
  11. ALEVE (CAPLET) [Concomitant]
  12. LESCOL XL [Concomitant]

REACTIONS (4)
  - ACUTE MYOCARDIAL INFARCTION [None]
  - CARDIAC FAILURE CONGESTIVE [None]
  - CORONARY ARTERY DISEASE [None]
  - ISCHAEMIC CARDIOMYOPATHY [None]
